FAERS Safety Report 5507441-X (Version None)
Quarter: 2007Q4

REPORT INFORMATION
  Report Type: 
  Country: None (occurrence: None)
  Receive Date: 20071106
  Receipt Date: 20071031
  Transmission Date: 20080405
  Serious: Yes (Death, Life-Threatening, Hospitalization, Disabling)
  Sender: FDA-Public Use
  Company Number: GB-ASTRAZENECA-2007GB01574

PATIENT
  Sex: Female

DRUGS (9)
  1. TAMOXIFEN CITRATE [Suspect]
     Indication: BREAST CANCER
     Route: 065
  2. AMLODIPINE [Concomitant]
  3. CITALOPRAM HYDROBROMIDE [Concomitant]
  4. METOCLOPRAMIDE [Concomitant]
  5. PREDNISOLONE [Concomitant]
  6. LANSOPRAZOLE [Concomitant]
  7. ASPIRIN [Concomitant]
  8. LEVOTHYROXINE SODIUM [Concomitant]
  9. METFORMIN [Concomitant]

REACTIONS (2)
  - DEATH [None]
  - ISCHAEMIC STROKE [None]
